FAERS Safety Report 6792137-7 (Version None)
Quarter: 2010Q2

REPORT INFORMATION
  Report Type: 
  Country: None (occurrence: None)
  Receive Date: 20100624
  Receipt Date: 20090625
  Transmission Date: 20101027
  Serious: Yes (Other)
  Sender: FDA-Public Use
  Company Number: US-PFIZER INC-2008059945

PATIENT
  Sex: Female
  Weight: 65 kg

DRUGS (3)
  1. PREMPRO [Suspect]
     Indication: HORMONE REPLACEMENT THERAPY
     Dosage: 0.625/2.5 MG
     Dates: start: 19950101, end: 20000101
  2. ACTIVELLE [Suspect]
     Indication: HORMONE REPLACEMENT THERAPY
     Dosage: 1-0/5MG
     Dates: start: 20000101, end: 20010101
  3. PREDNISONE [Suspect]
     Indication: MENOPAUSE
     Dosage: UNK
     Dates: start: 20010101

REACTIONS (1)
  - BREAST CANCER FEMALE [None]
